FAERS Safety Report 6821497-3 (Version None)
Quarter: 2010Q2

REPORT INFORMATION
  Report Type: 
  Country: None (occurrence: None)
  Receive Date: 20100630
  Receipt Date: 20100616
  Transmission Date: 20101027
  Serious: Yes (Other)
  Sender: FDA-Public Use
  Company Number: 7008342

PATIENT
  Age: 56 Year
  Sex: Female

DRUGS (2)
  1. REBIF [Suspect]
     Indication: MULTIPLE SCLEROSIS
     Dosage: 8.8 MCG, 3 IN 1 WK, SUBCUTANEOUS
     Route: 058
     Dates: start: 20100510, end: 20100601
  2. GABAPENTIN [Concomitant]

REACTIONS (3)
  - MANIA [None]
  - NEURALGIA [None]
  - PAIN IN JAW [None]
